FAERS Safety Report 9483969 (Version 2)
Quarter: 2013Q3

REPORT INFORMATION
  Report Type: Report from Study
  Country: CA (occurrence: CA)
  Receive Date: 20130828
  Receipt Date: 20130828
  Transmission Date: 20140515
  Serious: Yes (Other)
  Sender: FDA-Public Use
  Company Number: PHHO2010CA18139

PATIENT
  Age: 63 Year
  Sex: Female
  Weight: 77 kg

DRUGS (11)
  1. ALISKIREN [Suspect]
     Indication: CARDIOVASCULAR DISORDER
     Route: 048
     Dates: start: 20090603, end: 20090630
  2. ALISKIREN [Suspect]
     Route: 048
     Dates: start: 20090701, end: 20101119
  3. RAMIPRIL [Suspect]
     Indication: HYPERTENSION
     Dosage: 15 MG, UNK
     Dates: end: 20101115
  4. RAMIPRIL [Suspect]
     Dosage: OFF MEDICATION
     Dates: start: 20101116, end: 20101201
  5. RAMIPRIL [Suspect]
     Dosage: 10 MG, UNK
     Dates: start: 20101202, end: 20101208
  6. RAMIPRIL [Suspect]
     Dosage: 15 MG, UNK
     Dates: start: 20101209
  7. ATORVASTATIN [Concomitant]
  8. ASPIRIN [Concomitant]
  9. INSULIN [Concomitant]
  10. GLICLAZIDE [Concomitant]
  11. METFORMIN [Concomitant]

REACTIONS (10)
  - Hypovolaemia [Recovered/Resolved]
  - Hypotension [Recovered/Resolved]
  - Renal impairment [Recovering/Resolving]
  - Malaise [Recovering/Resolving]
  - Decreased appetite [Recovering/Resolving]
  - Nausea [Recovering/Resolving]
  - Vomiting [Recovering/Resolving]
  - Heart rate increased [Recovering/Resolving]
  - Blood creatinine increased [Recovering/Resolving]
  - Dehydration [Recovering/Resolving]
